FAERS Safety Report 22044429 (Version 1)
Quarter: 2023Q1

REPORT INFORMATION
  Report Type: Spontaneous
  Country: US (occurrence: None)
  Receive Date: 20230227
  Receipt Date: 20230227
  Transmission Date: 20230417
  Serious: No
  Sender: FDA-Public Use
  Company Number: None

PATIENT
  Sex: Female

DRUGS (21)
  1. AMBRISENTAN [Suspect]
     Active Substance: AMBRISENTAN
     Indication: Pulmonary hypertension
     Dosage: FREQUENCY : DAILY;?
     Route: 048
  2. FUROSEMIDE [Concomitant]
     Active Substance: FUROSEMIDE
  3. NORVASC [Concomitant]
     Active Substance: AMLODIPINE BESYLATE
  4. PRILOSEC [Concomitant]
     Active Substance: OMEPRAZOLE MAGNESIUM
  5. POTASSIUM [Concomitant]
     Active Substance: POTASSIUM
  6. CELLCEPT [Concomitant]
     Active Substance: MYCOPHENOLATE MOFETIL
  7. AMITRIPTYLINE HYDROCHLORIDE [Concomitant]
     Active Substance: AMITRIPTYLINE HYDROCHLORIDE
  8. ELIQUIS [Concomitant]
     Active Substance: APIXABAN
  9. LIPITOR [Concomitant]
     Active Substance: ATORVASTATIN CALCIUM
  10. TRACLEER [Concomitant]
     Active Substance: BOSENTAN
  11. CALCIUM [Concomitant]
     Active Substance: CALCIUM
  12. CELEBREX [Concomitant]
     Active Substance: CELECOXIB
  13. ZYRTEC [Concomitant]
     Active Substance: CETIRIZINE HYDROCHLORIDE
  14. DIETARY SUPPLEMENT [Concomitant]
     Active Substance: DIETARY SUPPLEMENT
  15. IMITREX [Concomitant]
     Active Substance: SUMATRIPTAN SUCCINATE
  16. TADALAFIL [Concomitant]
     Active Substance: TADALAFIL
  17. VITAMIN D3 [Concomitant]
     Active Substance: CHOLECALCIFEROL
  18. COENZYME Q10 [Concomitant]
     Active Substance: DIETARY SUPPLEMENT\UBIDECARENONE
  19. DILTIAZEM [Concomitant]
     Active Substance: DILTIAZEM
  20. ESTRADIOL [Concomitant]
     Active Substance: ESTRADIOL
  21. GABAPENTIN [Concomitant]
     Active Substance: GABAPENTIN

REACTIONS (2)
  - Product distribution issue [None]
  - Therapy interrupted [None]
